FAERS Safety Report 8832890 (Version 1)
Quarter: 2012Q4

REPORT INFORMATION
  Report Type: Spontaneous
  Country: US (occurrence: None)
  Receive Date: 20121009
  Receipt Date: 20121009
  Transmission Date: 20130627
  Serious: Yes (Other)
  Sender: FDA-Public Use
  Company Number: None

PATIENT
  Sex: Female

DRUGS (2)
  1. RECLAIM ANTI-AGING DAY CREAM SPF 15 % [Suspect]
     Dosage: once dermal
     Dates: start: 20110921
  2. SEIZURE MEDICATION [Concomitant]

REACTIONS (1)
  - Convulsion [None]
